FAERS Safety Report 24222526 (Version 1)
Quarter: 2024Q3

REPORT INFORMATION
  Report Type: Spontaneous
  Country: BR (occurrence: BR)
  Receive Date: 20240819
  Receipt Date: 20240819
  Transmission Date: 20241017
  Serious: Yes (Hospitalization, Other)
  Sender: AMGEN
  Company Number: BR-AMGEN-BRASP2024160432

PATIENT
  Age: 32 Year
  Sex: Female

DRUGS (3)
  1. BLINCYTO [Suspect]
     Active Substance: BLINATUMOMAB
     Indication: Product used for unknown indication
     Dosage: UNK
     Route: 065
  2. CYTARABINE [Concomitant]
     Active Substance: CYTARABINE
     Dosage: UNK
     Route: 037
  3. METHOTREXATE [Concomitant]
     Active Substance: METHOTREXATE
     Dosage: UNK
     Route: 029

REACTIONS (7)
  - Diplopia [Unknown]
  - Ophthalmoplegia [Unknown]
  - Eyelid ptosis [Unknown]
  - Pupillary reflex impaired [Unknown]
  - Facial paralysis [Unknown]
  - Vomiting [Unknown]
  - Headache [Unknown]
